FAERS Safety Report 5444040-2 (Version None)
Quarter: 2007Q3

REPORT INFORMATION
  Report Type: 
  Country: None (occurrence: None)
  Receive Date: 20070831
  Receipt Date: 20070816
  Transmission Date: 20080115
  Serious: Yes (Hospitalization)
  Sender: FDA-Public Use
  Company Number: A-NJ2007-17102

PATIENT
  Age: 79 Year
  Sex: Female
  Weight: 70.7 kg

DRUGS (1)
  1. TRACLEER [Suspect]
     Indication: PULMONARY HYPERTENSION
     Dosage: 62.5 ,MG, BID, ORAL
     Route: 048
     Dates: start: 20070628, end: 20070726

REACTIONS (6)
  - ATRIAL FIBRILLATION [None]
  - CARDIAC FAILURE CONGESTIVE [None]
  - DIALYSIS [None]
  - HYPOTENSION [None]
  - RASH [None]
  - RENAL FAILURE ACUTE [None]
